FAERS Safety Report 9179865 (Version 1)
Quarter: 2012Q4

REPORT INFORMATION
  Report Type: 
  Country: GB (occurrence: GB)
  Receive Date: 20121029
  Receipt Date: 20121029
  Transmission Date: 20130627
  Serious: Yes (Life-Threatening, Hospitalization)
  Sender: FDA-Public Use
  Company Number: GB-ELI_LILLY_AND_COMPANY-GB201210007451

PATIENT
  Age: 62 Year
  Sex: Male
  Weight: 130 kg

DRUGS (6)
  1. BYDUREON [Suspect]
     Indication: DIABETES MELLITUS
     Dosage: 2 mg, UNK
     Route: 058
     Dates: start: 20120703
  2. ASPIRIN [Concomitant]
     Dosage: 75 mg, qd
     Route: 048
     Dates: start: 20120319
  3. LERCANIDIPINE [Concomitant]
     Indication: HYPERTENSION
     Dosage: 10 mg, UNK
     Route: 048
     Dates: start: 2006
  4. LISINOPRIL [Concomitant]
     Indication: HYPERTENSION
     Dosage: 5 mg, qd
     Route: 048
     Dates: start: 2006
  5. METFORMIN [Concomitant]
     Indication: DIABETES MELLITUS
     Dosage: 1 g, bid
     Route: 048
     Dates: start: 20100720
  6. PIOGLITAZONE [Concomitant]
     Indication: DIABETES MELLITUS
     Dosage: 30 mg, qd
     Route: 048
     Dates: start: 201111

REACTIONS (1)
  - Epistaxis [Not Recovered/Not Resolved]
